FAERS Safety Report 5097062-8 (Version None)
Quarter: 2006Q3

REPORT INFORMATION
  Report Type: 
  Country: None (occurrence: None)
  Receive Date: 20060901
  Receipt Date: 20060824
  Transmission Date: 20061208
  Serious: Yes (Hospitalization)
  Sender: FDA-Public Use
  Company Number: 2006103450

PATIENT
  Age: 79 Year
  Sex: Female

DRUGS (11)
  1. TAHOR (ATORVASTATIN) [Suspect]
     Indication: DRUG USE FOR UNKNOWN INDICATION
     Dosage: 1 IN 1 D, ORAL
     Route: 048
     Dates: end: 20060626
  2. MIANSERIN (MIANSERIN) [Suspect]
     Indication: DRUG USE FOR UNKNOWN INDICATION
     Dosage: 60 MG (30 MG, 2 IN 1 D), ORAL
     Route: 048
     Dates: end: 20060626
  3. ASPIRIN [Suspect]
     Indication: ACUTE MYOCARDIAL INFARCTION
     Dosage: 1 IN 1 D, ORAL
     Route: 048
     Dates: end: 20060627
  4. GALANTAMINE (GALANTAMINE) [Suspect]
     Indication: PRESENILE DEMENTIA
     Dosage: 2 IN 1 D, ORAL
     Route: 048
     Dates: end: 20060627
  5. ATENOLOL [Suspect]
     Indication: HYPERTENSION
     Dosage: 50 MG (DAILY), ORAL
     Route: 048
     Dates: end: 20060626
  6. BAMBUTEROL (BAMBUTEROL) [Suspect]
     Indication: DRUG USE FOR UNKNOWN INDICATION
     Dosage: 10 MG (1 IN 1 D), ORAL
     Route: 048
     Dates: end: 20060626
  7. METFORMIN HCL [Concomitant]
  8. IRBESARTAN [Concomitant]
  9. CLOMIPRAMINE HCL [Concomitant]
  10. FENSPIRIDE (FENSPIRIDE) [Concomitant]
  11. ALDACTONE [Concomitant]

REACTIONS (9)
  - ASTHENIA [None]
  - ATRIAL FIBRILLATION [None]
  - DIARRHOEA [None]
  - FATIGUE [None]
  - GAIT DISTURBANCE [None]
  - HYPERKALAEMIA [None]
  - HYPOKALAEMIA [None]
  - OXYGEN SATURATION DECREASED [None]
  - RENAL FAILURE [None]
